FAERS Safety Report 8601729-1 (Version None)
Quarter: 2012Q3

REPORT INFORMATION
  Report Type: 
  Country: None (occurrence: None)
  Receive Date: 20120817
  Receipt Date: 20120216
  Transmission Date: 20120928
  Serious: Yes (Other)
  Sender: FDA-Public Use
  Company Number: US-BRISTOL-MYERS SQUIBB COMPANY-16402869

PATIENT
  Sex: Male
  Weight: 108 kg

DRUGS (1)
  1. SPRYCEL [Suspect]
     Indication: ACUTE LYMPHOCYTIC LEUKAEMIA
     Dosage: INTERRUPTED BTW AUG2009-FEB2010 REDUCED TO 50 MG TWICE DAILY  INTERRUPTED ON NOV2011
     Dates: start: 20090401

REACTIONS (5)
  - DIARRHOEA [None]
  - PLEURAL EFFUSION [None]
  - NAUSEA [None]
  - FLUID RETENTION [None]
  - WEIGHT INCREASED [None]
